FAERS Safety Report 5062628-8 (Version None)
Quarter: 2006Q3

REPORT INFORMATION
  Report Type: 
  Country: None (occurrence: None)
  Receive Date: 20060724
  Receipt Date: 20060724
  Transmission Date: 20061208
  Serious: No
  Sender: FDA-Public Use
  Company Number: None

PATIENT
  Age: 65 Year
  Sex: Female
  Weight: 77 kg

DRUGS (2)
  1. AVASTIN [Suspect]
     Indication: NON-SMALL CELL LUNG CANCER
     Dosage: 15MG/KG, IV, Q21 D
     Route: 042
     Dates: start: 20060405, end: 20060607
  2. TARCEVA [Suspect]
     Dosage: 150MG PO QD
     Route: 048
     Dates: start: 20060405, end: 20060706

REACTIONS (2)
  - EYE PAIN [None]
  - IRIDOCYCLITIS [None]
